FAERS Safety Report 8899826 (Version 3)
Quarter: 2013Q1

REPORT INFORMATION
  Report Type: Spontaneous
  Country: AR (occurrence: AR)
  Receive Date: 20121109
  Receipt Date: 20130313
  Transmission Date: 20140127
  Serious: Yes (Hospitalization)
  Sender: FDA-Public Use
  Company Number: PHHY2012AR102961

PATIENT
  Age: 52 Year
  Sex: Male

DRUGS (1)
  1. DIOVAN [Suspect]
     Indication: HYPERTENSION
     Dosage: 80 MG, DAILY

REACTIONS (3)
  - Hepatitis C [Recovered/Resolved]
  - Localised intraabdominal fluid collection [Recovered/Resolved]
  - Blood pressure decreased [Recovered/Resolved]
